FAERS Safety Report 9698870 (Version 1)
Quarter: 2013Q4

REPORT INFORMATION
  Report Type: Spontaneous
  Country: TR (occurrence: None)
  Receive Date: 20131118
  Receipt Date: 20131118
  Transmission Date: 20140711
  Serious: Yes (Other)
  Sender: FDA-Public Use
  Company Number: 2013TR00751

PATIENT
  Age: 45 Year
  Sex: Male

DRUGS (1)
  1. VALACYCLOVIR HYDROCHLORIDE (VALACYCLOVIR HYDROCHLORIDE) UNKNOWN [Suspect]
     Indication: NECROTISING RETINITIS
     Route: 048

REACTIONS (1)
  - Hepatitis toxic [None]
